FAERS Safety Report 24284995 (Version 1)
Quarter: 2024Q3

REPORT INFORMATION
  Report Type: Spontaneous
  Country: US (occurrence: US)
  Receive Date: 20240905
  Receipt Date: 20240905
  Transmission Date: 20241017
  Serious: No
  Sender: BIOGEN
  Company Number: US-BIOGEN-2023BI01215039

PATIENT
  Age: 60 Year
  Sex: Female

DRUGS (12)
  1. VUMERITY [Suspect]
     Active Substance: DIROXIMEL FUMARATE
     Indication: Multiple sclerosis
     Dosage: TAKE 2 CAPSULES (462MG) BY MOUTH TWICE DAILY.
     Route: 050
     Dates: start: 202305
  2. VUMERITY [Suspect]
     Active Substance: DIROXIMEL FUMARATE
     Dosage: TAKE 2 CAPSULES (462MG) BY MOUTH TWICE DAILY.
     Route: 050
     Dates: start: 20230516
  3. GABAPENTIN [Concomitant]
     Active Substance: GABAPENTIN
     Indication: Pain in extremity
     Route: 050
  4. DITROPAN [Concomitant]
     Active Substance: OXYBUTYNIN CHLORIDE
     Route: 050
  5. KLONOPIN [Concomitant]
     Active Substance: CLONAZEPAM
     Route: 050
  6. ADVIL [Concomitant]
     Active Substance: IBUPROFEN\IBUPROFEN SODIUM
     Route: 050
  7. PERCOCET [Concomitant]
     Active Substance: ACETAMINOPHEN\OXYCODONE HYDROCHLORIDE
     Dosage: 5-325
     Route: 050
  8. TIZANIDINE HYDROCHLORIDE [Concomitant]
     Active Substance: TIZANIDINE HYDROCHLORIDE
     Route: 050
  9. METHYLCOBALAMIN [Concomitant]
     Active Substance: METHYLCOBALAMIN
     Route: 050
  10. OXYBUTYNIN CHLORIDE [Concomitant]
     Active Substance: OXYBUTYNIN CHLORIDE
     Route: 050
  11. VITAMIN D [Concomitant]
     Active Substance: VITAMIN D NOS
     Route: 050
  12. PRIMIDONE [Concomitant]
     Active Substance: PRIMIDONE
     Route: 050

REACTIONS (32)
  - Product dose omission issue [Unknown]
  - Product dose omission in error [Unknown]
  - Product storage error [Unknown]
  - Parosmia [Not Recovered/Not Resolved]
  - Fatigue [Not Recovered/Not Resolved]
  - Balance disorder [Not Recovered/Not Resolved]
  - Mobility decreased [Not Recovered/Not Resolved]
  - Hypoacusis [Not Recovered/Not Resolved]
  - Agitation [Not Recovered/Not Resolved]
  - Pain in extremity [Unknown]
  - Dyspnoea [Unknown]
  - Contusion [Unknown]
  - Asthma [Unknown]
  - Chronic obstructive pulmonary disease [Unknown]
  - Emphysema [Unknown]
  - Allergy to plants [Unknown]
  - Gait disturbance [Unknown]
  - Central nervous system lesion [Unknown]
  - Sleep disorder [Unknown]
  - Bladder spasm [Unknown]
  - Magnetic resonance imaging abnormal [Unknown]
  - Syncope [Unknown]
  - Multiple sclerosis [Unknown]
  - Hypotension [Unknown]
  - Heart rate decreased [Unknown]
  - Confusional state [Unknown]
  - Musculoskeletal disorder [Unknown]
  - Urinary tract infection [Recovered/Resolved]
  - Skin laceration [Recovered/Resolved]
  - Fall [Recovered/Resolved]
  - Hot flush [Unknown]
  - Rash [Unknown]

NARRATIVE: CASE EVENT DATE: 20240601
